FAERS Safety Report 22392883 (Version 2)
Quarter: 2023Q2

REPORT INFORMATION
  Report Type: Spontaneous
  Country: CN (occurrence: CN)
  Receive Date: 20230601
  Receipt Date: 20230608
  Transmission Date: 20230721
  Serious: Yes (Other)
  Sender: FDA-Public Use
  Company Number: CN-SUN PHARMACEUTICAL INDUSTRIES LTD-2023R1-391316

PATIENT
  Age: 18 Year
  Sex: Female

DRUGS (3)
  1. LAMOTRIGINE [Suspect]
     Active Substance: LAMOTRIGINE
     Indication: Bipolar disorder
     Dosage: 25 MILLIGRAM, BID
     Route: 065
  2. VALPROIC ACID [Suspect]
     Active Substance: VALPROIC ACID
     Indication: Bipolar disorder
     Dosage: 500 MILLIGRAM, BID
     Route: 065
  3. PEROSPIRONE [Concomitant]
     Active Substance: PEROSPIRONE
     Indication: Bipolar disorder
     Dosage: 4 MILLIGRAM, BID
     Route: 065

REACTIONS (2)
  - Drug interaction [Unknown]
  - Drug reaction with eosinophilia and systemic symptoms [Recovered/Resolved]
